FAERS Safety Report 17872885 (Version 2)
Quarter: 2020Q2

REPORT INFORMATION
  Report Type: Spontaneous
  Country: AE (occurrence: AE)
  Receive Date: 20200608
  Receipt Date: 20200619
  Transmission Date: 20200714
  Serious: Yes (Death)
  Sender: FDA-Public Use
  Company Number: AE-INCYTE CORPORATION-2020IN005131

PATIENT

DRUGS (1)
  1. JAKAVI [Suspect]
     Active Substance: RUXOLITINIB
     Indication: MYELOFIBROSIS
     Dosage: 5 MG, BID
     Route: 065

REACTIONS (4)
  - Fall [Unknown]
  - Subdural haematoma [Fatal]
  - Cardiac arrest [Fatal]
  - Bradycardia [Fatal]

NARRATIVE: CASE EVENT DATE: 20200402
